FAERS Safety Report 5337282-8 (Version None)
Quarter: 2007Q2

REPORT INFORMATION
  Report Type: 
  Country: None (occurrence: None)
  Receive Date: 20070529
  Receipt Date: 20070523
  Transmission Date: 20071010
  Serious: Yes (Other)
  Sender: FDA-Public Use
  Company Number: B0472472A

PATIENT
  Sex: Male

DRUGS (6)
  1. AVANDIA [Suspect]
     Indication: DRUG USE FOR UNKNOWN INDICATION
     Route: 065
  2. METFORMIN HCL [Concomitant]
  3. SULFONYLUREA [Concomitant]
  4. STATINS [Concomitant]
  5. ACE INHIBITOR [Concomitant]
  6. ASPIRIN [Concomitant]

REACTIONS (2)
  - DYSPNOEA [None]
  - PULMONARY OEDEMA [None]
